FAERS Safety Report 5538415-0 (Version None)
Quarter: 2007Q4

REPORT INFORMATION
  Report Type: 
  Country: None (occurrence: None)
  Receive Date: 20071205
  Receipt Date: 20071121
  Transmission Date: 20080405
  Serious: Yes (Hospitalization, Other)
  Sender: FDA-Public Use
  Company Number: 2007BI024878

PATIENT
  Age: 51 Year
  Sex: Male

DRUGS (8)
  1. NATALIZUMAB [Suspect]
     Indication: MULTIPLE SCLEROSIS
     Dosage: 300 MG; QM; IV
     Route: 042
     Dates: start: 20060928
  2. NEURONTIN [Concomitant]
  3. MIRAPEX [Concomitant]
  4. LAMICTAL [Concomitant]
  5. PROVIGIL [Concomitant]
  6. ZOCOR [Concomitant]
  7. FLUVOXAMINE MALEATE [Concomitant]
  8. VIAGRA [Concomitant]

REACTIONS (2)
  - BRONCHITIS [None]
  - NEUTROPENIC SEPSIS [None]
